FAERS Safety Report 12398253 (Version 1)
Quarter: 2016Q2

REPORT INFORMATION
  Report Type: Spontaneous
  Country: US (occurrence: None)
  Receive Date: 20160523
  Receipt Date: 20160523
  Transmission Date: 20160815
  Serious: Yes (Hospitalization)
  Sender: FDA-Public Use
  Company Number: None

PATIENT
  Age: 44 Year
  Sex: Male
  Weight: 77.11 kg

DRUGS (1)
  1. BEVACIZUMAB (RHUMAB VEGF) [Suspect]
     Active Substance: BEVACIZUMAB
     Dates: end: 20160411

REACTIONS (8)
  - Atelectasis [None]
  - Abdominal tenderness [None]
  - Malaise [None]
  - Diarrhoea [None]
  - Productive cough [None]
  - Seizure [None]
  - Asthenia [None]
  - Pneumonia aspiration [None]

NARRATIVE: CASE EVENT DATE: 20160413
